FAERS Safety Report 23986225 (Version 1)
Quarter: 2024Q2

REPORT INFORMATION
  Report Type: Report from Study
  Country: US (occurrence: US)
  Receive Date: 20240618
  Receipt Date: 20240618
  Transmission Date: 20240716
  Serious: Yes (Other)
  Sender: FDA-Public Use
  Company Number: US-TEVA-VS-3208971

PATIENT
  Sex: Female

DRUGS (14)
  1. AUSTEDO [Suspect]
     Active Substance: DEUTETRABENAZINE
     Indication: Tardive dyskinesia
     Dosage: 1 TABLET BY MOUTH TWICE A DAY FOR 2 WEEKS THEN 2 TABLETS TWICE  A DAY
     Route: 048
  2. FAMOTIDINE [Concomitant]
     Active Substance: FAMOTIDINE
  3. GABAPENTIN [Concomitant]
     Active Substance: GABAPENTIN
  4. Lurasidone H [Concomitant]
  5. ATORVASTATIN [Concomitant]
     Active Substance: ATORVASTATIN
  6. GLYBURIDE [Concomitant]
     Active Substance: GLYBURIDE
  7. IRBESARTAN [Concomitant]
     Active Substance: IRBESARTAN
  8. LAMICTAL [Concomitant]
     Active Substance: LAMOTRIGINE
  9. METFORMIN HYDROCHLORIDE [Concomitant]
     Active Substance: METFORMIN HYDROCHLORIDE
  10. PROPRANOLOL [Concomitant]
     Active Substance: PROPRANOLOL HYDROCHLORIDE
  11. OMEPRAZOLE [Concomitant]
     Active Substance: DONEPEZIL HYDROCHLORIDE\OMEPRAZOLE\OMEPRAZOLE MAGNESIUM
     Dosage: CPD
  12. OZEMPIC [Suspect]
     Active Substance: SEMAGLUTIDE
     Dosage: (0.2 SOP 2MG/3ML)
     Route: 065
  13. VRAYLAR [Suspect]
     Active Substance: CARIPRAZINE
     Route: 065
  14. ARIPIPRAZOLE [Concomitant]
     Active Substance: ARIPIPRAZOLE

REACTIONS (5)
  - Loss of consciousness [Not Recovered/Not Resolved]
  - Decreased appetite [Not Recovered/Not Resolved]
  - Teeth brittle [Not Recovered/Not Resolved]
  - Loss of personal independence in daily activities [Not Recovered/Not Resolved]
  - Tremor [Not Recovered/Not Resolved]
